FAERS Safety Report 25113277 (Version 2)
Quarter: 2025Q2

REPORT INFORMATION
  Report Type: Spontaneous
  Country: FR (occurrence: FR)
  Receive Date: 20250324
  Receipt Date: 20250423
  Transmission Date: 20250716
  Serious: Yes (Death)
  Sender: PFIZER
  Company Number: None

PATIENT
  Age: 77 Year
  Sex: Male

DRUGS (2)
  1. BEVACIZUMAB [Suspect]
     Active Substance: BEVACIZUMAB
     Indication: Hepatocellular carcinoma
     Route: 042
     Dates: start: 20250307, end: 20250307
  2. ATEZOLIZUMAB [Suspect]
     Active Substance: ATEZOLIZUMAB
     Indication: Hepatocellular carcinoma
     Route: 042
     Dates: start: 20250307, end: 20250307

REACTIONS (3)
  - Cardio-respiratory arrest [Fatal]
  - Ventricular fibrillation [Fatal]
  - Off label use [Unknown]

NARRATIVE: CASE EVENT DATE: 20250307
